FAERS Safety Report 4396595-7 (Version None)
Quarter: 2004Q3

REPORT INFORMATION
  Report Type: 
  Country: None (occurrence: None)
  Receive Date: 20040709
  Receipt Date: 20040628
  Transmission Date: 20050211
  Serious: Yes (Death, Other)
  Sender: FDA-Public Use
  Company Number: 2004034385

PATIENT
  Age: 60 Year
  Sex: Male
  Weight: 87 kg

DRUGS (4)
  1. VIAGRA [Suspect]
     Indication: PULMONARY HYPERTENSION
     Dosage: 150 MG (50 MG, 3 IN 1 D), ORAL
     Route: 048
     Dates: start: 20020801
  2. WARFARIN           (WARFARIN) [Concomitant]
  3. AMIODARONE HCL [Concomitant]
  4. LISINOPRIL [Concomitant]

REACTIONS (1)
  - BRONCHOPNEUMONIA [None]
